FAERS Safety Report 5387635-7 (Version None)
Quarter: 2007Q3

REPORT INFORMATION
  Report Type: 
  Country: None (occurrence: None)
  Receive Date: 20070712
  Receipt Date: 20070626
  Transmission Date: 20080115
  Serious: Yes (Hospitalization)
  Sender: FDA-Public Use
  Company Number: 8024696

PATIENT
  Age: 8 Year
  Sex: Male

DRUGS (1)
  1. EQUASYM [Suspect]
     Indication: ATTENTION DEFICIT/HYPERACTIVITY DISORDER
     Dosage: 5 MG 2/D PO
     Route: 048
     Dates: start: 20070516, end: 20070516

REACTIONS (2)
  - BLISTER [None]
  - RASH GENERALISED [None]
